FAERS Safety Report 23567657 (Version 1)
Quarter: 2024Q1

REPORT INFORMATION
  Report Type: Report from Study
  Country: DE (occurrence: DE)
  Receive Date: 20240226
  Receipt Date: 20240226
  Transmission Date: 20240409
  Serious: Yes (Hospitalization)
  Sender: FDA-Public Use
  Company Number: DE-ABBVIE-5651538

PATIENT
  Age: 57 Year
  Sex: Female

DRUGS (9)
  1. RINVOQ [Suspect]
     Active Substance: UPADACITINIB
     Indication: Colitis ulcerative
     Route: 048
     Dates: start: 20230821
  2. PREDNISOLONE [Concomitant]
     Active Substance: PREDNISOLONE
     Indication: Colitis ulcerative
     Route: 048
     Dates: start: 2014
  3. SALOFALK [Concomitant]
     Indication: Colitis ulcerative
     Route: 048
     Dates: start: 2019
  4. MORPHINE [Concomitant]
     Active Substance: MORPHINE
     Indication: Pain
     Route: 048
     Dates: start: 2022
  5. PANTOPRAZOLE SODIUM [Concomitant]
     Active Substance: PANTOPRAZOLE SODIUM
     Indication: Gastrointestinal disorder prophylaxis
     Route: 048
     Dates: start: 2019
  6. CORTISONE [Suspect]
     Active Substance: CORTISONE
     Indication: Gastrointestinal inflammation
     Dosage: CORTISONE INCREASE (50MG)
     Route: 065
  7. CORTISONE [Suspect]
     Active Substance: CORTISONE
     Indication: Gastrointestinal inflammation
     Route: 065
  8. BISOPROLOL [Concomitant]
     Active Substance: BISOPROLOL\BISOPROLOL FUMARATE
     Indication: Tachycardia
     Route: 048
     Dates: start: 2019
  9. TORSEMIDE [Concomitant]
     Active Substance: TORSEMIDE
     Indication: Fluid retention
     Route: 048
     Dates: start: 2020

REACTIONS (5)
  - Dyspnoea [Not Recovered/Not Resolved]
  - Gastrointestinal inflammation [Not Recovered/Not Resolved]
  - Coronavirus infection [Recovered/Resolved with Sequelae]
  - Weight increased [Not Recovered/Not Resolved]
  - Intestinal stenosis [Not Recovered/Not Resolved]

NARRATIVE: CASE EVENT DATE: 20231101
